FAERS Safety Report 5065340-4 (Version None)
Quarter: 2006Q3

REPORT INFORMATION
  Report Type: 
  Country: None (occurrence: None)
  Receive Date: 20060731
  Receipt Date: 20060309
  Transmission Date: 20061208
  Serious: Yes (Hospitalization)
  Sender: FDA-Public Use
  Company Number: JP-SP-2006-00768

PATIENT
  Age: 71 Year
  Sex: Male

DRUGS (3)
  1. IMMUCYST [Suspect]
     Indication: CARCINOMA IN SITU OF BLADDER
     Dosage: TOTAL DOSE : 486 - 567 MG (6-7 INSTILLATIONS)
     Route: 043
     Dates: start: 20050809, end: 20051011
  2. NAFTOPIDIL [Concomitant]
     Dates: start: 20041124
  3. PROPIVERINE HYDROCHLORIDE [Concomitant]
     Dates: start: 20050614, end: 20060105

REACTIONS (6)
  - ARTHRITIS [None]
  - CONJUNCTIVITIS [None]
  - DYSURIA [None]
  - POLLAKIURIA [None]
  - PYREXIA [None]
  - REITER'S SYNDROME [None]
